FAERS Safety Report 17430933 (Version 1)
Quarter: 2020Q1

REPORT INFORMATION
  Report Type: Spontaneous
  Country: US (occurrence: US)
  Receive Date: 20200217
  Receipt Date: 20200217
  Transmission Date: 20200409
  Serious: Yes (Other)
  Sender: FDA-Public Use
  Company Number: None

PATIENT
  Age: 63 Year
  Sex: Female

DRUGS (3)
  1. TERASOZIN 1-2 MG PRN [Concomitant]
     Dates: start: 20200110
  2. LOSARTAN 50-100 MG [Suspect]
     Active Substance: LOSARTAN
     Indication: HYPERTENSIVE CRISIS
     Route: 048
     Dates: start: 20200110, end: 20200217
  3. NORVASC [Concomitant]
     Active Substance: AMLODIPINE BESYLATE
     Dates: start: 20200110

REACTIONS (15)
  - Blood pressure increased [None]
  - Vomiting [None]
  - Drug ineffective [None]
  - Sneezing [None]
  - Nausea [None]
  - Diarrhoea [None]
  - Condition aggravated [None]
  - Headache [None]
  - Pain [None]
  - Asthenia [None]
  - Dysgeusia [None]
  - Arthralgia [None]
  - Oropharyngeal pain [None]
  - Fatigue [None]
  - Insomnia [None]

NARRATIVE: CASE EVENT DATE: 20200217
